FAERS Safety Report 10246852 (Version 1)
Quarter: 2014Q2

REPORT INFORMATION
  Report Type: Spontaneous
  Country: US (occurrence: US)
  Receive Date: 20140619
  Receipt Date: 20140619
  Transmission Date: 20141212
  Serious: Yes (Death)
  Sender: FDA-Public Use
  Company Number: US-SA-2014SA043422

PATIENT
  Age: 56 Year
  Sex: Male

DRUGS (3)
  1. NASACORT ALLERGY [Suspect]
     Indication: HYPERSENSITIVITY
     Dosage: 2 SPRAYS/NOSTRIL
     Route: 045
  2. ZYRTEC-D /USA/ [Concomitant]
  3. SINGULAIR [Concomitant]

REACTIONS (2)
  - Completed suicide [Fatal]
  - Drug ineffective [Unknown]
